FAERS Safety Report 23687285 (Version 1)
Quarter: 2024Q1

REPORT INFORMATION
  Report Type: Spontaneous
  Country: US (occurrence: None)
  Receive Date: 20240329
  Receipt Date: 20240329
  Transmission Date: 20240409
  Serious: Yes (Other)
  Sender: FDA-Public Use
  Company Number: None

PATIENT
  Age: 4 Year
  Sex: Male

DRUGS (1)
  1. BENEFIX [Suspect]
     Active Substance: COAGULATION FACTOR IX RECOMBINANT HUMAN\ISOPROPYL ALCOHOL
     Indication: Factor IX deficiency
     Dosage: 1500 UNITS ONCE WEEKLY IV INFUSION?
     Route: 042
     Dates: start: 20240312

REACTIONS (1)
  - Joint microhaemorrhage [None]

NARRATIVE: CASE EVENT DATE: 20240328
